FAERS Safety Report 12587783 (Version 2)
Quarter: 2016Q3

REPORT INFORMATION
  Report Type: Spontaneous
  Country: FR (occurrence: FR)
  Receive Date: 20160725
  Receipt Date: 20160906
  Transmission Date: 20161109
  Serious: Yes (Disabling, Other)
  Sender: FDA-Public Use
  Company Number: FR-PFIZER INC-2016349462

PATIENT
  Age: 88 Year
  Sex: Female

DRUGS (8)
  1. UVEDOSE [Concomitant]
     Active Substance: CHOLECALCIFEROL
     Dosage: UNK, EVERY 3 MONTHS
  2. LASILIX [Suspect]
     Active Substance: FUROSEMIDE
     Dosage: 40 MG, DAILY
     Route: 048
     Dates: start: 20160617, end: 20160621
  3. LAROXYL [Suspect]
     Active Substance: AMITRIPTYLINE
     Indication: PARAESTHESIA
     Dosage: 10 GTT, 1X/DAY AT BEDTIME
     Route: 048
     Dates: start: 20160620, end: 20160621
  4. LAROXYL [Suspect]
     Active Substance: AMITRIPTYLINE
     Indication: BURNING SENSATION
  5. ACUPAN [Concomitant]
     Active Substance: NEFOPAM HYDROCHLORIDE
     Dosage: 1 DF, 3X/DAY
  6. LASILIX [Suspect]
     Active Substance: FUROSEMIDE
     Indication: HYPERTENSION
     Dosage: 20 MG, DAILY
     Route: 048
  7. LYRICA [Suspect]
     Active Substance: PREGABALIN
     Indication: PARAESTHESIA
     Dosage: 50 MG, 2X/DAY IN THE MORNING AND IN THE EVENING
     Route: 048
     Dates: start: 20160620
  8. MOVICOL [Concomitant]
     Active Substance: POLYETHYLENE GLYCOL 3350\POTASSIUM CHLORIDE\SODIUM BICARBONATE\SODIUM CHLORIDE
     Dosage: 2 DF, AS NEEDED

REACTIONS (4)
  - Blood pressure systolic decreased [Unknown]
  - Hyponatraemia [Unknown]
  - Fall [Recovered/Resolved with Sequelae]
  - Femoral neck fracture [Unknown]

NARRATIVE: CASE EVENT DATE: 20160620
